FAERS Safety Report 5405262-X (Version None)
Quarter: 2007Q3

REPORT INFORMATION
  Report Type: 
  Country: None (occurrence: None)
  Receive Date: 20070803
  Receipt Date: 20070727
  Transmission Date: 20080115
  Serious: Yes (Hospitalization, Disabling, Other)
  Sender: FDA-Public Use
  Company Number: A0653013A

PATIENT
  Age: 7 Year
  Sex: Male
  Weight: 20.9 kg

DRUGS (4)
  1. LAMICTAL [Suspect]
     Indication: DEPRESSION
     Dosage: 25MG PER DAY
     Route: 048
  2. ADDERALL 10 [Concomitant]
  3. KLONOPIN [Concomitant]
  4. GUAIFENESIN [Concomitant]
     Dates: start: 20070514, end: 20070517

REACTIONS (13)
  - BLISTER [None]
  - DECREASED APPETITE [None]
  - LIP EROSION [None]
  - LIP EXFOLIATION [None]
  - MUCOSAL EROSION [None]
  - ORAL MUCOSAL EXFOLIATION [None]
  - PAIN [None]
  - SKIN EROSION [None]
  - SKIN EXFOLIATION [None]
  - SKIN LESION [None]
  - STEVENS-JOHNSON SYNDROME [None]
  - TONGUE EXFOLIATION [None]
  - TONGUE ULCERATION [None]
